FAERS Safety Report 8961374 (Version 1)
Quarter: 2012Q4

REPORT INFORMATION
  Report Type: 
  Country: US (occurrence: US)
  Receive Date: 20121213
  Receipt Date: 20121213
  Transmission Date: 20130627
  Serious: Yes (Hospitalization)
  Sender: FDA-Public Use
  Company Number: US-JNJFOC-20121201848

PATIENT
  Sex: Female
  Weight: 44 kg

DRUGS (4)
  1. TYLENOL [Suspect]
     Route: 065
  2. TYLENOL [Suspect]
     Indication: PRODUCT USED FOR UNKNOWN INDICATION
     Route: 065
  3. LYRICA [Suspect]
     Indication: NERVE INJURY
     Dosage: 50-75mg, since 10-15 years
     Route: 065
  4. KLONOPIN [Concomitant]
     Route: 065

REACTIONS (4)
  - Diverticulitis [Unknown]
  - Abscess [Unknown]
  - Gastric disorder [None]
  - Constipation [None]
